FAERS Safety Report 5612894-2 (Version None)
Quarter: 2008Q1

REPORT INFORMATION
  Report Type: 
  Country: None (occurrence: None)
  Receive Date: 20080204
  Receipt Date: 20080129
  Transmission Date: 20080703
  Serious: Yes (Other)
  Sender: FDA-Public Use
  Company Number: US-BOEHRINGER INGELHEIM GMBH, GERMANY-2007-BP-19385YA

PATIENT
  Sex: Male

DRUGS (10)
  1. TAMSULOSIN HCL [Suspect]
     Indication: ASTHMA
     Route: 048
     Dates: start: 20060101, end: 20070101
  2. LIPITOR [Suspect]
     Indication: BLOOD CHOLESTEROL INCREASED
     Route: 065
     Dates: end: 20070101
  3. VIAGRA [Suspect]
     Indication: ERECTILE DYSFUNCTION
     Route: 065
     Dates: start: 20060101
  4. PLAVIX [Concomitant]
     Route: 065
  5. GLUCOVANCE [Concomitant]
     Indication: DIABETES MELLITUS
  6. COZAAR [Concomitant]
  7. ATENOLOL [Concomitant]
  8. DIGOXIN [Concomitant]
  9. ASPIRIN [Concomitant]
  10. LORAZEPAM [Concomitant]
     Indication: PANIC ATTACK

REACTIONS (14)
  - ASTHENIA [None]
  - BACK PAIN [None]
  - CHILLS [None]
  - DRUG THERAPY [None]
  - ERECTILE DYSFUNCTION [None]
  - FATIGUE [None]
  - FEELING ABNORMAL [None]
  - FLUSHING [None]
  - HEADACHE [None]
  - HYPERSENSITIVITY [None]
  - INSOMNIA [None]
  - NASAL CONGESTION [None]
  - OCULAR HYPERAEMIA [None]
  - PAIN [None]
